FAERS Safety Report 7036096-0 (Version None)
Quarter: 2010Q4

REPORT INFORMATION
  Report Type: 
  Country: None (occurrence: None)
  Receive Date: 20101008
  Receipt Date: 20090911
  Transmission Date: 20110411
  Serious: No
  Sender: FDA-Public Use
  Company Number: US-BRISTOL-MYERS SQUIBB COMPANY-14779151

PATIENT
  Age: 66 Year
  Sex: Male

DRUGS (5)
  1. AVAPRO [Suspect]
     Indication: BLOOD PRESSURE
     Dosage: TAKING FOR 1-2 MONTHS;IN THE MORNING
  2. UROXATRAL [Suspect]
     Dosage: EVERY EVENING 3 DAYS AGO
  3. ALEVE (CAPLET) [Concomitant]
  4. ATENOLOL [Concomitant]
  5. COZAAR [Concomitant]

REACTIONS (1)
  - VISION BLURRED [None]
